FAERS Safety Report 10938393 (Version 2)
Quarter: 2015Q2

REPORT INFORMATION
  Report Type: Spontaneous
  Country: US (occurrence: US)
  Receive Date: 20150321
  Receipt Date: 20150525
  Transmission Date: 20150821
  Serious: Yes (Other)
  Sender: FDA-Public Use
  Company Number: US-JNJFOC-20130912799

PATIENT
  Age: 78 Year
  Sex: Female
  Weight: 66.68 kg

DRUGS (1)
  1. STELARA [Suspect]
     Active Substance: USTEKINUMAB
     Indication: PSORIASIS
     Dosage: HUSBAND INJECTED THE DOSE AT HOME
     Route: 058

REACTIONS (3)
  - Psoriasis [Not Recovered/Not Resolved]
  - Incorrect route of drug administration [Unknown]
  - Inappropriate schedule of drug administration [Unknown]
